FAERS Safety Report 8914272 (Version 2)
Quarter: 2013Q1

REPORT INFORMATION
  Report Type: Spontaneous
  Country: IE (occurrence: IE)
  Receive Date: 20121119
  Receipt Date: 20130214
  Transmission Date: 20140127
  Serious: Yes (Other)
  Sender: FDA-Public Use
  Company Number: IE-JNJFOC-20121105391

PATIENT
  Sex: Female

DRUGS (7)
  1. SIMPONI [Suspect]
     Indication: RHEUMATOID ARTHRITIS
     Dosage: 16 INJECTIONS RECEIVED
     Route: 058
     Dates: start: 20110707, end: 20121026
  2. ELTROXIN [Concomitant]
     Indication: HYPOTHYROIDISM
     Route: 048
  3. METHOTREXATE [Concomitant]
     Indication: RHEUMATOID ARTHRITIS
     Route: 048
     Dates: start: 200411, end: 201210
  4. FOLIC ACID [Concomitant]
  5. NEULASTA [Concomitant]
  6. CHEMOTHERAPY [Concomitant]
  7. CLONFOLIC [Concomitant]
     Indication: RHEUMATOID ARTHRITIS
     Route: 048
     Dates: start: 200411

REACTIONS (1)
  - Breast cancer [Unknown]
